FAERS Safety Report 8051044-2 (Version None)
Quarter: 2012Q1

REPORT INFORMATION
  Report Type: 
  Country: None (occurrence: None)
  Receive Date: 20120117
  Receipt Date: 20120107
  Transmission Date: 20120608
  Serious: Yes (Other)
  Sender: FDA-Public Use
  Company Number: PHHY2012GB001974

PATIENT
  Age: 32 Year
  Sex: Female

DRUGS (4)
  1. HEMABATE [Suspect]
     Indication: POSTPARTUM HAEMORRHAGE
     Route: 030
  2. OXYTOCIN [Suspect]
     Indication: POSTPARTUM HAEMORRHAGE
  3. MISOPROSTOL [Suspect]
     Indication: POSTPARTUM HAEMORRHAGE
  4. SYNTOCINON [Suspect]
     Indication: POSTPARTUM HAEMORRHAGE

REACTIONS (8)
  - VAGINAL DISCHARGE [None]
  - UTERINE INVERSION [None]
  - HAEMORRHAGE [None]
  - DRUG INEFFECTIVE [None]
  - PYREXIA [None]
  - MUSCLE NECROSIS [None]
  - SEPSIS [None]
  - PYOMETRA [None]
